FAERS Safety Report 7401040-0 (Version None)
Quarter: 2011Q1

REPORT INFORMATION
  Report Type: 
  Country: None (occurrence: None)
  Receive Date: 20110329
  Receipt Date: 20110322
  Transmission Date: 20110831
  Serious: Yes (Hospitalization, Other)
  Sender: FDA-Public Use
  Company Number: 2009-201000-NL

PATIENT
  Age: 33 Year
  Sex: Female
  Weight: 69.4 kg

DRUGS (3)
  1. NUVARING [Suspect]
     Indication: CONTRACEPTION
     Dates: start: 20060601, end: 20070701
  2. FIORICET [Concomitant]
  3. VICODIN [Concomitant]

REACTIONS (16)
  - SPONDYLOLISTHESIS [None]
  - CONDITION AGGRAVATED [None]
  - NEPHROLITHIASIS [None]
  - MACULE [None]
  - INTERVERTEBRAL DISC PROTRUSION [None]
  - MIGRAINE [None]
  - PREGNANCY [None]
  - NASOPHARYNGITIS [None]
  - DRUG EXPOSURE BEFORE PREGNANCY [None]
  - PULMONARY EMBOLISM [None]
  - PLEURAL EFFUSION [None]
  - ROAD TRAFFIC ACCIDENT [None]
  - ALCOHOL USE [None]
  - ACNE [None]
  - BACK PAIN [None]
  - THROMBOSIS [None]
